FAERS Safety Report 5876605-8 (Version None)
Quarter: 2008Q3

REPORT INFORMATION
  Report Type: 
  Country: None (occurrence: None)
  Receive Date: 20080908
  Receipt Date: 20080827
  Transmission Date: 20090109
  Serious: Yes (Hospitalization)
  Sender: FDA-Public Use
  Company Number: 20085146

PATIENT
  Age: 10 Year
  Sex: Female

DRUGS (1)
  1. LIORESAL [Suspect]
     Indication: MUSCLE SPASTICITY
     Dosage: 400 MCG, DAILY, INTRATHECAL

REACTIONS (6)
  - CHEST PAIN [None]
  - CONSTIPATION [None]
  - COSTOCHONDRITIS [None]
  - UNEVALUABLE EVENT [None]
  - VOMITING [None]
  - WALKING AID USER [None]
